FAERS Safety Report 12689908 (Version 1)
Quarter: 2016Q3

REPORT INFORMATION
  Report Type: Spontaneous
  Country: US (occurrence: US)
  Receive Date: 20160826
  Receipt Date: 20160826
  Transmission Date: 20161109
  Serious: No
  Sender: FDA-Public Use
  Company Number: US-ASTRAZENECA-2016SE90797

PATIENT
  Age: 35 Year
  Sex: Male
  Weight: 64.4 kg

DRUGS (2)
  1. RHINOCORT [Suspect]
     Active Substance: BUDESONIDE
     Indication: SEASONAL ALLERGY
     Dosage: ONE SPRAY IN EACH NOSTRIL,ONE PER DAY,
     Route: 045
     Dates: end: 201608
  2. RHINOCORT [Suspect]
     Active Substance: BUDESONIDE
     Indication: SEASONAL ALLERGY
     Dosage: TWO SPRAYS EACH NOSTRIL A DAY
     Route: 045

REACTIONS (1)
  - Prostatic disorder [Recovering/Resolving]
